FAERS Safety Report 9067772 (Version 4)
Quarter: 2013Q4

REPORT INFORMATION
  Report Type: Report from Study
  Country: JP (occurrence: JP)
  Receive Date: 20130206
  Receipt Date: 20131226
  Transmission Date: 20140711
  Serious: Yes (Life-Threatening, Hospitalization)
  Sender: FDA-Public Use
  Company Number: PHHY2013JP004644

PATIENT
  Age: 59 Year
  Sex: Male

DRUGS (11)
  1. FTY 720 [Suspect]
     Indication: MULTIPLE SCLEROSIS
     Dosage: 0.5 MG, QD
     Route: 048
     Dates: start: 20121019, end: 20130110
  2. FTY 720 [Suspect]
     Dosage: 0.5 MG, QD
     Route: 048
     Dates: start: 20130201
  3. EXFORGE [Concomitant]
     Dosage: UNK UKN, UNK
     Route: 048
     Dates: start: 20120213
  4. VOGLIBOSE [Concomitant]
     Dosage: 0.6 DF, UNK
     Route: 048
     Dates: start: 20120305
  5. LIPITOR [Concomitant]
     Dosage: 10 MG, UNK
     Route: 048
     Dates: start: 20120305
  6. EUGLUCON [Concomitant]
     Dosage: 1.25 MG, UNK
     Route: 048
     Dates: start: 20120326
  7. VESICARE [Concomitant]
     Dosage: 2.5 MG, UNK
     Route: 048
     Dates: start: 20120702
  8. BACLOFEN [Concomitant]
     Dosage: 40 MG, UNK
     Route: 048
  9. GASTER D [Concomitant]
     Dosage: 10 MG, UNK
     Route: 048
  10. RIVOTRIL [Concomitant]
     Dosage: 0.5 MG, UNK
     Route: 048
  11. LOXONIN [Concomitant]
     Dosage: 60 MG, PRN
     Route: 048

REACTIONS (1)
  - Myocardial infarction [Recovering/Resolving]
